FAERS Safety Report 23090259 (Version 3)
Quarter: 2024Q2

REPORT INFORMATION
  Report Type: Spontaneous
  Country: CA (occurrence: CA)
  Receive Date: 20231020
  Receipt Date: 20240628
  Transmission Date: 20240716
  Serious: No
  Sender: FDA-Public Use
  Company Number: CA-PFIZER INC-202300302230

PATIENT
  Age: 56 Year
  Sex: Female

DRUGS (1)
  1. ABRILADA [Suspect]
     Active Substance: ADALIMUMAB-AFZB
     Indication: Crohn^s disease
     Dosage: 40 MG, WEEKLY
     Route: 058
     Dates: start: 20230928

REACTIONS (3)
  - Off label use [Unknown]
  - Poor quality device used [Unknown]
  - Needle issue [Unknown]

NARRATIVE: CASE EVENT DATE: 20231005
